FAERS Safety Report 13777613 (Version 1)
Quarter: 2017Q3

REPORT INFORMATION
  Report Type: Spontaneous
  Country: US (occurrence: US)
  Receive Date: 20170721
  Receipt Date: 20170721
  Transmission Date: 20171127
  Serious: No
  Sender: FDA-Public Use
  Company Number: US-BAUSCH-BL-2017-010404

PATIENT
  Sex: Female
  Weight: 55.84 kg

DRUGS (4)
  1. BRIMONIDINE [Suspect]
     Active Substance: BRIMONIDINE TARTRATE
     Indication: INTRAOCULAR PRESSURE INCREASED
     Route: 047
     Dates: start: 2015
  2. LATANOPROST. [Suspect]
     Active Substance: LATANOPROST
     Indication: INTRAOCULAR PRESSURE INCREASED
     Dosage: ONE DROP IN RIGHT EYE ONCE A NIGHT AT BEDTIME, ONE DROP ONCE IN A WHILE IN THE LEFT EYE
     Route: 047
  3. LEVOBUNOLOL [Suspect]
     Active Substance: LEVOBUNOLOL
     Indication: INTRAOCULAR PRESSURE INCREASED
     Route: 047
     Dates: start: 2015
  4. ALEVE [Concomitant]
     Active Substance: NAPROXEN SODIUM
     Indication: BACK PAIN
     Dosage: 2 IN LAST TWO WEEKS
     Route: 065

REACTIONS (2)
  - Weight increased [Unknown]
  - Joint swelling [Not Recovered/Not Resolved]

NARRATIVE: CASE EVENT DATE: 2016
